FAERS Safety Report 23996999 (Version 1)
Quarter: 2024Q2

REPORT INFORMATION
  Report Type: Spontaneous
  Country: CN (occurrence: CN)
  Receive Date: 20240621
  Receipt Date: 20240621
  Transmission Date: 20240715
  Serious: Yes (Hospitalization)
  Sender: FDA-Public Use
  Company Number: CN-NOVITIUMPHARMA-2024CNNVP01056

PATIENT
  Age: 68 Year
  Sex: Male

DRUGS (5)
  1. LEVOFLOXACIN [Suspect]
     Active Substance: LEVOFLOXACIN
     Indication: Klebsiella infection
  2. CEFUROXIME [Concomitant]
     Active Substance: CEFUROXIME
     Indication: Klebsiella infection
  3. CEFOPERAZONE\SULBACTAM [Concomitant]
     Active Substance: CEFOPERAZONE\SULBACTAM
     Indication: Klebsiella infection
  4. PIPERACILLIN SODIUM\TAZOBACTAM SODIUM [Concomitant]
     Active Substance: PIPERACILLIN SODIUM\TAZOBACTAM SODIUM
     Indication: Klebsiella infection
  5. MEROPENEM [Concomitant]
     Active Substance: MEROPENEM
     Indication: Klebsiella infection

REACTIONS (1)
  - Drug ineffective [Unknown]
